FAERS Safety Report 4757808-2 (Version None)
Quarter: 2005Q3

REPORT INFORMATION
  Report Type: 
  Country: None (occurrence: None)
  Receive Date: 20050831
  Receipt Date: 20050822
  Transmission Date: 20060218
  Serious: Yes (Disabling)
  Sender: FDA-Public Use
  Company Number: 200517505GDDC

PATIENT
  Age: 81 Year
  Sex: Male
  Weight: 76.5 kg

DRUGS (6)
  1. METRONIDAZOLE [Suspect]
     Indication: TOOTH ABSCESS
     Route: 048
     Dates: start: 20050731, end: 20050801
  2. LOSARTAN POTASSIUM [Concomitant]
     Indication: CARDIAC FAILURE
     Route: 048
     Dates: start: 20041029
  3. ASPIRIN [Concomitant]
     Indication: PERIPHERAL VASCULAR DISORDER
     Route: 048
     Dates: start: 20040629
  4. CREON [Concomitant]
     Indication: PANCREATECTOMY
     Dosage: DOSE: 10,000
     Route: 048
     Dates: start: 20030313
  5. LANSOPRAZOLE [Concomitant]
     Indication: GASTROOESOPHAGEAL REFLUX DISEASE
     Route: 048
     Dates: start: 20030313
  6. PHENOXYMETHYL PENICILLIN [Concomitant]
     Indication: TOOTH ABSCESS
     Route: 048
     Dates: start: 20050723, end: 20050730

REACTIONS (3)
  - ARTHRALGIA [None]
  - DIFFICULTY IN WALKING [None]
  - MUSCULAR WEAKNESS [None]
